FAERS Safety Report 5824545-2 (Version None)
Quarter: 2008Q3

REPORT INFORMATION
  Report Type: 
  Country: None (occurrence: None)
  Receive Date: 20080728
  Receipt Date: 20080716
  Transmission Date: 20090109
  Serious: Yes (Hospitalization)
  Sender: FDA-Public Use
  Company Number: ES-AMGEN-UK285756

PATIENT
  Sex: Male

DRUGS (11)
  1. PANITUMUMAB [Suspect]
     Indication: SQUAMOUS CELL CARCINOMA
     Route: 042
     Dates: start: 20080521
  2. PANITUMUMAB - STUDY PROCEDURE [Suspect]
     Route: 042
     Dates: start: 20080521
  3. CISPLATIN [Suspect]
     Route: 042
     Dates: start: 20080521
  4. RADIATION THERAPY [Suspect]
     Dates: start: 20080521
  5. LIDOCAINE [Concomitant]
     Route: 065
  6. MYCOSTATIN [Concomitant]
     Route: 065
  7. OMEPRAZOLE [Concomitant]
     Route: 065
  8. FORTECORTIN [Concomitant]
     Route: 065
  9. GRANISETRON HCL [Concomitant]
     Route: 065
  10. APREPITANT [Concomitant]
     Route: 065
  11. SALMETEROL [Concomitant]
     Route: 065

REACTIONS (4)
  - CANDIDIASIS [None]
  - DYSPHAGIA [None]
  - MUCOSAL INFLAMMATION [None]
  - PAIN [None]
